FAERS Safety Report 25114279 (Version 5)
Quarter: 2025Q2

REPORT INFORMATION
  Report Type: Spontaneous
  Country: US (occurrence: US)
  Receive Date: 20250324
  Receipt Date: 20250519
  Transmission Date: 20250717
  Serious: Yes (Hospitalization, Other)
  Sender: SANOFI AVENTIS
  Company Number: US-SA-2025SA082070

PATIENT
  Age: 72 Year
  Sex: Female
  Weight: 64.41 kg

DRUGS (5)
  1. REZUROCK [Suspect]
     Active Substance: BELUMOSUDIL
     Indication: Graft versus host disease
     Dosage: 200 MG, QD
     Route: 048
     Dates: start: 20230808
  2. PROGRAF [Concomitant]
     Active Substance: TACROLIMUS
     Dosage: UNK, QD
  3. TIBSOVO [Concomitant]
     Active Substance: IVOSIDENIB
     Dosage: UNK, QD
  4. MIDOSTAURIN [Concomitant]
     Active Substance: MIDOSTAURIN
  5. ACYCLOVIR [Concomitant]
     Active Substance: ACYCLOVIR

REACTIONS (13)
  - Acute myeloid leukaemia recurrent [Unknown]
  - Pneumonia [Unknown]
  - Alopecia [Unknown]
  - Asthenia [Unknown]
  - Abdominal pain [Unknown]
  - Pyrexia [Unknown]
  - Infection [Not Recovered/Not Resolved]
  - Fatigue [Unknown]
  - Nausea [Unknown]
  - Diarrhoea [Unknown]
  - General physical health deterioration [Unknown]
  - Loss of personal independence in daily activities [Unknown]
  - Inappropriate schedule of product administration [Unknown]
